FAERS Safety Report 5898891-0 (Version None)
Quarter: 2008Q3

REPORT INFORMATION
  Report Type: 
  Country: None (occurrence: None)
  Receive Date: 20080925
  Receipt Date: 20080911
  Transmission Date: 20090109
  Serious: Yes (Other)
  Sender: FDA-Public Use
  Company Number: US-TYCO HEALTHCARE/MALLINCKRODT-T200801496

PATIENT

DRUGS (3)
  1. ACETAMINOPHEN AND OXYCODONE HCL [Suspect]
     Indication: PAIN
     Dosage: 5/325 MG
  2. VANCOMYCIN [Suspect]
     Indication: STAPHYLOCOCCAL INFECTION
     Dosage: 1 G, SINGLE
  3. AMOXICILLIN + CLAVULANATE POTASSIUM [Concomitant]
     Indication: CELLULITIS

REACTIONS (2)
  - ACUTE PULMONARY OEDEMA [None]
  - DRUG HYPERSENSITIVITY [None]
